FAERS Safety Report 6988218-5 (Version None)
Quarter: 2010Q3

REPORT INFORMATION
  Report Type: 
  Country: None (occurrence: None)
  Receive Date: 20100916
  Receipt Date: 20100908
  Transmission Date: 20110219
  Serious: Yes (Hospitalization)
  Sender: FDA-Public Use
  Company Number: GXKR2010CH10246

PATIENT
  Age: 74 Year
  Sex: Male

DRUGS (5)
  1. SIMVASTATIN (NGX) [Suspect]
     Indication: HYPERLIPIDAEMIA
     Dosage: 40 MG/DAY
     Route: 048
  2. CLOZAPINE [Suspect]
     Indication: SCHIZOPHRENIA, PARANOID TYPE
     Dosage: 25 MG, QID
     Route: 048
     Dates: end: 20090312
  3. ASPIRIN [Concomitant]
  4. HYDROXYZINE HYDROCHLORIDE [Concomitant]
  5. ELOCON [Concomitant]

REACTIONS (4)
  - BLOOD CREATINE PHOSPHOKINASE INCREASED [None]
  - MYOGLOBINAEMIA [None]
  - RENAL FAILURE ACUTE [None]
  - TARDIVE DYSKINESIA [None]
